FAERS Safety Report 5263535-8 (Version None)
Quarter: 2007Q1

REPORT INFORMATION
  Report Type: 
  Country: None (occurrence: None)
  Receive Date: 20070313
  Receipt Date: 20070303
  Transmission Date: 20070707
  Serious: Yes (Hospitalization, Other)
  Sender: FDA-Public Use
  Company Number: PHBS2007BR04205

PATIENT
  Sex: Female

DRUGS (1)
  1. SLOW-K [Suspect]
     Indication: BLOOD POTASSIUM DECREASED
     Dosage: 600 MG, UNK
     Route: 048

REACTIONS (1)
  - CARDIAC OPERATION [None]
